FAERS Safety Report 15145551 (Version 2)
Quarter: 2019Q4

REPORT INFORMATION
  Report Type: Spontaneous
  Country: US (occurrence: US)
  Receive Date: 20180713
  Receipt Date: 20191015
  Transmission Date: 20200122
  Serious: Yes (Hospitalization)
  Sender: FDA-Public Use
  Company Number: US-ALLERGAN-1835245US

PATIENT
  Sex: Male
  Weight: 87.53 kg

DRUGS (4)
  1. NORCO [Suspect]
     Active Substance: ACETAMINOPHEN\HYDROCODONE BITARTRATE
     Indication: PROCEDURAL PAIN
     Dosage: AS NEEDED
     Dates: start: 20180630
  2. NORCO [Suspect]
     Active Substance: ACETAMINOPHEN\HYDROCODONE BITARTRATE
     Dosage: 1 DF, QD
     Dates: start: 20180629, end: 20180630
  3. NORCO [Suspect]
     Active Substance: ACETAMINOPHEN\HYDROCODONE BITARTRATE
     Dosage: 2 DF, QD
     Route: 048
     Dates: start: 20180628, end: 20180628
  4. NORCO [Suspect]
     Active Substance: ACETAMINOPHEN\HYDROCODONE BITARTRATE
     Dosage: 3 DF, QD
     Route: 048
     Dates: start: 20180622, end: 20180625

REACTIONS (1)
  - Postoperative ileus [Recovered/Resolved]

NARRATIVE: CASE EVENT DATE: 20180625
